FAERS Safety Report 6082404-7 (Version None)
Quarter: 2009Q1

REPORT INFORMATION
  Report Type: 
  Country: None (occurrence: None)
  Receive Date: 20090218
  Receipt Date: 20090203
  Transmission Date: 20090719
  Serious: Yes (Disabling)
  Sender: FDA-Public Use
  Company Number: IT-GENENTECH-277169

PATIENT
  Sex: Female

DRUGS (2)
  1. AVASTIN [Suspect]
     Indication: DRUG USE FOR UNKNOWN INDICATION
     Dosage: 540 MG, 2/WEEK
     Route: 042
     Dates: start: 20090128
  2. IRINOTECAN HCL [Suspect]
     Indication: DRUG USE FOR UNKNOWN INDICATION
     Dosage: 200 MG, 2/WEEK
     Route: 042
     Dates: start: 20090128

REACTIONS (2)
  - ABASIA [None]
  - DEPRESSED LEVEL OF CONSCIOUSNESS [None]
